FAERS Safety Report 9166366 (Version 2)
Quarter: 2013Q2

REPORT INFORMATION
  Report Type: Spontaneous
  Country: US (occurrence: US)
  Receive Date: 20130315
  Receipt Date: 20130408
  Transmission Date: 20140414
  Serious: Yes (Hospitalization, Other)
  Sender: FDA-Public Use
  Company Number: US-ASTRAZENECA-2013SE16035

PATIENT
  Age: 66 Year
  Sex: Female
  Weight: 95.7 kg

DRUGS (22)
  1. BRILINTA [Suspect]
     Indication: ACUTE CORONARY SYNDROME
     Dosage: LOADING DOSE OF 180 MG
     Route: 048
     Dates: start: 20130301
  2. BRILINTA [Suspect]
     Indication: STENT PLACEMENT
     Dosage: LOADING DOSE OF 180 MG
     Route: 048
     Dates: start: 20130301
  3. BRILINTA [Suspect]
     Indication: ACUTE CORONARY SYNDROME
     Route: 048
  4. BRILINTA [Suspect]
     Indication: STENT PLACEMENT
     Route: 048
  5. CRESTOR [Suspect]
     Route: 048
  6. METOPROLOL TARTRATE [Suspect]
     Route: 048
  7. OMEPRAZOLE [Suspect]
     Route: 048
  8. ASPIRIN [Suspect]
     Route: 048
  9. METFORMIN [Concomitant]
     Route: 048
  10. METFORMIN [Concomitant]
     Route: 048
  11. OSTEO BI-FLEX [Concomitant]
     Route: 048
  12. OSTEO BI-FLEX [Concomitant]
     Dosage: 200-250 MG, DAILY
     Route: 048
  13. PAROXETINE HCL [Concomitant]
     Route: 048
  14. B 12 [Concomitant]
     Dosage: 1000 MCG, DAILY
     Route: 048
  15. LOSARTAN [Concomitant]
  16. LASIX [Concomitant]
  17. VITAMIN D3 [Concomitant]
     Dosage: 2000 UNIT TABLET DAILY
     Route: 048
  18. NITROGLYCERIN [Concomitant]
     Indication: CHEST PAIN
     Route: 060
  19. NITROGLYCERIN [Concomitant]
     Indication: CHEST PAIN
     Dosage: AS REQUIRED
     Route: 060
  20. TYLENOL EXTRA STRENGTH [Concomitant]
     Indication: HEADACHE
  21. IBUPROFEN [Concomitant]
     Route: 048
  22. LOVENOX [Concomitant]
     Indication: THROMBOSIS PROPHYLAXIS

REACTIONS (41)
  - Device occlusion [Recovering/Resolving]
  - Thrombosis in device [Recovering/Resolving]
  - Myocardial infarction [Recovering/Resolving]
  - Coronary artery disease [Unknown]
  - Aortic valve incompetence [Unknown]
  - Aortic arteriosclerosis [Unknown]
  - Diastolic dysfunction [Unknown]
  - Breast cancer metastatic [Unknown]
  - Left ventricular hypertrophy [Unknown]
  - Coronary artery stenosis [Unknown]
  - Cardiac failure congestive [Unknown]
  - Panic attack [Unknown]
  - Anaemia [Unknown]
  - Ischaemic cardiomyopathy [Unknown]
  - Bundle branch block right [Unknown]
  - Pyrexia [Unknown]
  - Cardiac stress test abnormal [Unknown]
  - Hyperlipidaemia [Unknown]
  - Mitral valve incompetence [Unknown]
  - Type 2 diabetes mellitus [Unknown]
  - Hypertension [Unknown]
  - Dyslipidaemia [Unknown]
  - Angina pectoris [Unknown]
  - Dyspnoea [Unknown]
  - Arthritis [Unknown]
  - Bronchitis [Unknown]
  - Headache [Unknown]
  - Obesity [Unknown]
  - Allergic sinusitis [Unknown]
  - Dyspnoea exertional [Unknown]
  - Dyspepsia [Unknown]
  - Muscle spasms [Unknown]
  - Back pain [Unknown]
  - Arthralgia [Unknown]
  - Lymphoedema [Unknown]
  - Chronic obstructive pulmonary disease [Unknown]
  - Dyspnoea paroxysmal nocturnal [Unknown]
  - Sleep apnoea syndrome [Unknown]
  - Haematoma [Recovering/Resolving]
  - Osteoarthritis [Unknown]
  - Intentional drug misuse [Recovering/Resolving]
